FAERS Safety Report 25768367 (Version 1)
Quarter: 2025Q3

REPORT INFORMATION
  Report Type: Spontaneous
  Country: US (occurrence: US)
  Receive Date: 20250905
  Receipt Date: 20250905
  Transmission Date: 20251021
  Serious: No
  Sender: DOMPE FARMACEUTICI
  Company Number: US-FARMAPROD-202506-2094

PATIENT
  Sex: Female
  Weight: 77.11 kg

DRUGS (17)
  1. OXERVATE [Suspect]
     Active Substance: CENEGERMIN-BKBJ
     Indication: Neurotrophic keratopathy
     Route: 047
     Dates: start: 20250507
  2. OSTEO BI-FLEX [ASCORBIC ACID;BOSWELLIA SERRATA RESIN;CHONDROITIN SULFA [Concomitant]
  3. ACAI BERRY [Concomitant]
  4. FLAXSEED [Concomitant]
     Active Substance: FLAX SEED
  5. VITAMIN C [Concomitant]
     Active Substance: ASCORBIC ACID
  6. BIOTIN [Concomitant]
     Active Substance: BIOTIN
  7. LACTOSE FAST ACTING RELIEF [Concomitant]
  8. LINZESS [Concomitant]
     Active Substance: LINACLOTIDE
  9. VITAMIN D2 [Concomitant]
     Active Substance: ERGOCALCIFEROL
  10. FAMOTIDINE [Concomitant]
     Active Substance: FAMOTIDINE
  11. FUROSEMIDE [Concomitant]
     Active Substance: FUROSEMIDE
  12. POTASSIUM CHLORIDE [Concomitant]
     Active Substance: POTASSIUM CHLORIDE
  13. MAGNESIUM OXIDE [Concomitant]
     Active Substance: MAGNESIUM OXIDE
  14. FLUOROMETHOLONE [Concomitant]
     Active Substance: FLUOROMETHOLONE
  15. IVIZIA [Concomitant]
     Active Substance: POVIDONE
  16. SYSTANE COMPLETE PF [Concomitant]
     Active Substance: PROPYLENE GLYCOL
  17. CEQUA [Concomitant]
     Active Substance: CYCLOSPORINE

REACTIONS (4)
  - Eyelid pain [Unknown]
  - Eyelid margin crusting [Unknown]
  - Foreign body sensation in eyes [Unknown]
  - Wrong technique in product usage process [Unknown]
